FAERS Safety Report 5409215-7 (Version None)
Quarter: 2007Q3

REPORT INFORMATION
  Report Type: 
  Country: None (occurrence: None)
  Receive Date: 20070807
  Receipt Date: 20070807
  Transmission Date: 20080115
  Serious: No
  Sender: FDA-Public Use
  Company Number: None

PATIENT
  Sex: Female
  Weight: 81.6475 kg

DRUGS (2)
  1. AVANDAMET [Suspect]
     Indication: DIABETES MELLITUS
     Dosage: 2MG/500MG DAILY
     Dates: start: 20031125, end: 20050125
  2. AVANDAMET [Suspect]
     Indication: DIABETES MELLITUS
     Dosage: 2MG/500MG DAILY
     Dates: start: 20050125, end: 20051024

REACTIONS (1)
  - MYOCARDIAL INFARCTION [None]
